FAERS Safety Report 7617302-8 (Version None)
Quarter: 2011Q3

REPORT INFORMATION
  Report Type: 
  Country: None (occurrence: None)
  Receive Date: 20110718
  Receipt Date: 20110704
  Transmission Date: 20111222
  Serious: Yes (Hospitalization)
  Sender: FDA-Public Use
  Company Number: PHHY2011CN61538

PATIENT
  Age: 14 Year
  Sex: Female

DRUGS (1)
  1. CARBAMAZEPINE [Suspect]
     Indication: EPILEPSY
     Dosage: 0.2 G, BID
     Dates: start: 20100730

REACTIONS (26)
  - AMMONIA INCREASED [None]
  - LOSS OF CONSCIOUSNESS [None]
  - SKIN EXFOLIATION [None]
  - BLOOD BILIRUBIN INCREASED [None]
  - ALANINE AMINOTRANSFERASE INCREASED [None]
  - STEVENS-JOHNSON SYNDROME [None]
  - EPILEPSY [None]
  - PUPILLARY REFLEX IMPAIRED [None]
  - RASH [None]
  - LIMB DISCOMFORT [None]
  - ASPARTATE AMINOTRANSFERASE INCREASED [None]
  - RESPIRATORY FAILURE [None]
  - RESPIRATORY TRACT INFECTION [None]
  - PNEUMONIA [None]
  - YELLOW SKIN [None]
  - EXTENSOR PLANTAR RESPONSE [None]
  - PLEURAL EFFUSION [None]
  - PRURITUS [None]
  - DRUG HYPERSENSITIVITY [None]
  - HEPATIC ENCEPHALOPATHY [None]
  - BREATH SOUNDS ABNORMAL [None]
  - HEPATIC ENZYME INCREASED [None]
  - ACUTE HEPATIC FAILURE [None]
  - COMA [None]
  - HYPOREFLEXIA [None]
  - PYREXIA [None]
